FAERS Safety Report 9471828 (Version 1)
Quarter: 2013Q3

REPORT INFORMATION
  Report Type: Spontaneous
  Country: US (occurrence: None)
  Receive Date: 20130819
  Receipt Date: 20130819
  Transmission Date: 20140515
  Serious: Yes (Hospitalization, Other)
  Sender: FDA-Public Use
  Company Number: DAV-AE-GEM-13-02

PATIENT
  Age: 59 Year
  Sex: Male

DRUGS (7)
  1. GEMFIBROZIL [Suspect]
     Indication: ACUTE MYOCARDIAL INFARCTION
     Dates: end: 201108
  2. ATORVASTATIN [Concomitant]
  3. OMEPRAZOLE [Concomitant]
  4. AMLODIPINE [Concomitant]
  5. ASPIRIN [Concomitant]
  6. NITRATE [Concomitant]
  7. METOPROLOL [Concomitant]

REACTIONS (2)
  - Polymyositis [None]
  - Drug interaction [None]
